FAERS Safety Report 15117413 (Version 1)
Quarter: 2018Q3

REPORT INFORMATION
  Report Type: Spontaneous
  Country: US (occurrence: US)
  Receive Date: 20180706
  Receipt Date: 20180706
  Transmission Date: 20181010
  Serious: Yes (Hospitalization)
  Sender: FDA-Public Use
  Company Number: US-GILEAD-2018-0348673

PATIENT
  Age: 3 Year
  Sex: Male

DRUGS (1)
  1. CAYSTON [Suspect]
     Active Substance: AZTREONAM
     Indication: PSEUDOMONAS INFECTION
     Dosage: UNK
     Route: 055

REACTIONS (7)
  - Drug administered in wrong device [Unknown]
  - Stoma site irritation [Recovering/Resolving]
  - Cough [Not Recovered/Not Resolved]
  - Musculoskeletal disorder [Unknown]
  - Stoma site discharge [Not Recovered/Not Resolved]
  - Off label use [Unknown]
  - Sputum increased [Not Recovered/Not Resolved]
